FAERS Safety Report 4615179-6 (Version None)
Quarter: 2005Q1

REPORT INFORMATION
  Report Type: 
  Country: None (occurrence: None)
  Receive Date: 20050322
  Receipt Date: 20050311
  Transmission Date: 20050727
  Serious: Yes (Life-Threatening, Hospitalization)
  Sender: FDA-Public Use
  Company Number: 2005JP000482

PATIENT
  Age: 74 Year
  Sex: Female

DRUGS (2)
  1. CEFAMEZIN [Suspect]
     Indication: DRUG USE FOR UNKNOWN INDICATION
     Dosage: 1G PER DAY
     Route: 042
     Dates: start: 20050308, end: 20050308
  2. OMNIPAQUE 140 [Concomitant]
     Route: 065
     Dates: start: 20050308, end: 20050308

REACTIONS (1)
  - SHOCK [None]
